FAERS Safety Report 7365157-1 (Version None)
Quarter: 2011Q1

REPORT INFORMATION
  Report Type: 
  Country: None (occurrence: None)
  Receive Date: 20110321
  Receipt Date: 20110314
  Transmission Date: 20110831
  Serious: Yes (Other)
  Sender: FDA-Public Use
  Company Number: IT-MERCK-1103ITA00026

PATIENT
  Age: 68 Year
  Sex: Female

DRUGS (1)
  1. PROPECIA [Suspect]
     Indication: TRICHORRHEXIS
     Route: 048
     Dates: start: 20070101

REACTIONS (3)
  - DRUG ADMINISTRATION ERROR [None]
  - BREAST CANCER [None]
  - OFF LABEL USE [None]
